FAERS Safety Report 5898800-4 (Version None)
Quarter: 2008Q3

REPORT INFORMATION
  Report Type: 
  Country: None (occurrence: None)
  Receive Date: 20080925
  Receipt Date: 20080626
  Transmission Date: 20090109
  Serious: Yes (Disabling)
  Sender: FDA-Public Use
  Company Number: A0734961A

PATIENT
  Sex: Female

DRUGS (2)
  1. WELLBUTRIN XL [Suspect]
     Indication: DEPRESSION
     Dosage: 300MG PER DAY
     Route: 048
     Dates: start: 20080101, end: 20080601
  2. NO CONCURRENT MEDICATION [Concomitant]

REACTIONS (3)
  - CONTUSION [None]
  - CONVULSION [None]
  - COORDINATION ABNORMAL [None]
